FAERS Safety Report 22306651 (Version 6)
Quarter: 2024Q4

REPORT INFORMATION
  Report Type: Report from Study
  Country: ES (occurrence: ES)
  Receive Date: 20230511
  Receipt Date: 20241025
  Transmission Date: 20250114
  Serious: Yes (Death)
  Sender: JOHNSON AND JOHNSON
  Company Number: ES-JNJFOC-20230518749

PATIENT
  Age: 73 Year
  Sex: Male
  Weight: 76 kg

DRUGS (6)
  1. SIMPONI [Suspect]
     Active Substance: GOLIMUMAB
     Indication: Colitis ulcerative
     Route: 058
     Dates: start: 20190729, end: 20230310
  2. SIMPONI [Suspect]
     Active Substance: GOLIMUMAB
     Dosage: MOST RECENT DOSE ON FEB-2023
     Route: 058
     Dates: start: 20201123, end: 202302
  3. PENTASA [Concomitant]
     Active Substance: MESALAMINE
  4. PENTASA [Concomitant]
     Active Substance: MESALAMINE
     Dates: end: 202307
  5. PENTASA [Concomitant]
     Active Substance: MESALAMINE
     Dosage: THERAPY STOP DATE /AUG/2024
  6. BIMATOPROST\TIMOLOL [Concomitant]
     Active Substance: BIMATOPROST\TIMOLOL
     Indication: Glaucoma
     Dosage: THERAPY STOP DATE /AUG/2024
     Dates: start: 20150513

REACTIONS (1)
  - Colon cancer [Fatal]

NARRATIVE: CASE EVENT DATE: 20230308
